FAERS Safety Report 5525448-3 (Version None)
Quarter: 2007Q4

REPORT INFORMATION
  Report Type: 
  Country: None (occurrence: None)
  Receive Date: 20071119
  Receipt Date: 20071108
  Transmission Date: 20080405
  Serious: Yes (Hospitalization)
  Sender: FDA-Public Use
  Company Number: GXKR2007GB09609

PATIENT
  Age: 45 Year
  Sex: Female

DRUGS (4)
  1. ASPIRIN [Suspect]
     Indication: THROMBOSIS PROPHYLAXIS
  2. CLOPIDOGREL [Suspect]
     Indication: THROMBOSIS PROPHYLAXIS
  3. OXYBUPROCAINE  (OXYBUPROCAINE) [Concomitant]
  4. MARCAINE [Concomitant]

REACTIONS (3)
  - OCULAR RETROBULBAR HAEMORRHAGE [None]
  - OPERATIVE HAEMORRHAGE [None]
  - VITREOUS HAEMORRHAGE [None]
